FAERS Safety Report 5060225-1 (Version None)
Quarter: 2006Q3

REPORT INFORMATION
  Report Type: 
  Country: None (occurrence: None)
  Receive Date: 20060720
  Receipt Date: 20060706
  Transmission Date: 20061208
  Serious: Yes (Hospitalization)
  Sender: FDA-Public Use
  Company Number: BR-2006-013479

PATIENT
  Age: 24 Year
  Sex: Female

DRUGS (1)
  1. BETASERON [Suspect]
     Indication: MULTIPLE SCLEROSIS
     Dosage: 1 ML, SUBCUTANEOUS
     Route: 058
     Dates: start: 20060201

REACTIONS (2)
  - IMMUNODEFICIENCY [None]
  - MULTIPLE SCLEROSIS RELAPSE [None]
